FAERS Safety Report 23840515 (Version 1)
Quarter: 2024Q2

REPORT INFORMATION
  Report Type: Spontaneous
  Country: US (occurrence: US)
  Receive Date: 20240510
  Receipt Date: 20240510
  Transmission Date: 20240716
  Serious: No
  Sender: FDA-Public Use
  Company Number: US-UCBSA-2024007387

PATIENT
  Age: 31 Year
  Sex: Female

DRUGS (1)
  1. CIMZIA [Suspect]
     Active Substance: CERTOLIZUMAB PEGOL
     Indication: Rheumatoid arthritis
     Dosage: 400 MILLIGRAM, EV 2 WEEKS(QOW) (WEEKS 0, 2 AND 4;)
     Route: 058
     Dates: start: 202401

REACTIONS (2)
  - Alopecia [Unknown]
  - Oral herpes [Unknown]

NARRATIVE: CASE EVENT DATE: 20240101
